FAERS Safety Report 11177297 (Version 1)
Quarter: 2015Q2

REPORT INFORMATION
  Report Type: Spontaneous
  Country: US (occurrence: None)
  Receive Date: 20150515
  Receipt Date: 20150515
  Transmission Date: 20150821
  Serious: Yes (Other)
  Sender: FDA-Public Use
  Company Number: 117764

PATIENT
  Age: 48 Year
  Sex: Female
  Weight: 64.4 kg

DRUGS (10)
  1. PREVALITE (COLESTYRAMINE; PHENYLALANINE) [Concomitant]
  2. OXYCODONE [Concomitant]
     Active Substance: OXYCODONE
  3. IRON (ASCORBIC ACID, BETAINE HYDROCHLORIDE, COPPER, CYANOCOBALAMIN, FOLIC ACID, IRON, MANGANESE, NICOTINAMIDE, PYRIDOXINE HYDROCHLORIDE, RIBOFLAVIN, THIAMINE HYDROCHLORIDE) [Concomitant]
  4. MAGNESIUM (MAGNESIUM HYDROXIDE) [Concomitant]
  5. LYRICA [Concomitant]
     Active Substance: PREGABALIN
  6. CIMZIA [Suspect]
     Active Substance: CERTOLIZUMAB PEGOL
     Indication: ARTHRITIS ENTEROPATHIC
     Route: 058
     Dates: start: 201311
  7. CALCIUM (CALCIUM GLUCONATE) [Concomitant]
  8. ALLEGRA (FEXOFENADINE HYDROCHLORIDE) [Concomitant]
  9. CIMZIA [Suspect]
     Active Substance: CERTOLIZUMAB PEGOL
     Indication: CROHN^S DISEASE
     Route: 058
     Dates: start: 201311
  10. AMITRIPTYLINE [Concomitant]
     Active Substance: AMITRIPTYLINE

REACTIONS (7)
  - Epistaxis [None]
  - Sinusitis [None]
  - Alopecia [None]
  - Skin irritation [None]
  - Nasal dryness [None]
  - Rash generalised [None]
  - Psoriasis [None]

NARRATIVE: CASE EVENT DATE: 2013
